FAERS Safety Report 4814016-4 (Version None)
Quarter: 2005Q4

REPORT INFORMATION
  Report Type: 
  Country: None (occurrence: None)
  Receive Date: 20051028
  Receipt Date: 20050307
  Transmission Date: 20060501
  Serious: No
  Sender: FDA-Public Use
  Company Number: US-GLAXOSMITHKLINE-A0548612A

PATIENT
  Age: 81 Year
  Sex: Female

DRUGS (4)
  1. SEREVENT [Suspect]
     Indication: CHRONIC OBSTRUCTIVE PULMONARY DISEASE
     Dosage: 1PUFF TWICE PER DAY
     Route: 055
     Dates: start: 20050302
  2. MAXAIR [Concomitant]
  3. DIURETIC [Concomitant]
  4. ZITHROMAX [Concomitant]

REACTIONS (2)
  - POOR QUALITY DRUG ADMINISTERED [None]
  - POSTNASAL DRIP [None]
